FAERS Safety Report 9296458 (Version 5)
Quarter: 2015Q2

REPORT INFORMATION
  Report Type: Spontaneous
  Country: US (occurrence: US)
  Receive Date: 20130517
  Receipt Date: 20150623
  Transmission Date: 20150821
  Serious: No
  Sender: FDA-Public Use
  Company Number: US-009507513-1305USA009960

PATIENT
  Sex: Male

DRUGS (1)
  1. PROPECIA [Suspect]
     Active Substance: FINASTERIDE
     Indication: ALOPECIA
     Dosage: 1 MG, UNK
     Route: 048
     Dates: start: 2000, end: 20111110

REACTIONS (11)
  - Hormone level abnormal [Unknown]
  - Brain injury [Unknown]
  - Erectile dysfunction [Not Recovered/Not Resolved]
  - Soft tissue injury [Unknown]
  - Dysphagia [Unknown]
  - Psychosexual disorder [Unknown]
  - Sperm concentration decreased [Unknown]
  - Blood testosterone decreased [Unknown]
  - Penile vascular disorder [Unknown]
  - Sexual dysfunction [Not Recovered/Not Resolved]
  - Hernia [Unknown]

NARRATIVE: CASE EVENT DATE: 2005
